FAERS Safety Report 4382394-9 (Version None)
Quarter: 2004Q2

REPORT INFORMATION
  Report Type: 
  Country: None (occurrence: None)
  Receive Date: 20040617
  Receipt Date: 20040607
  Transmission Date: 20050107
  Serious: Yes (Death)
  Sender: FDA-Public Use
  Company Number: TAP2004Q00503

PATIENT
  Age: 82 Year
  Sex: Male

DRUGS (8)
  1. HP-PAC (LANSOPRAZOLE, CLARITHROMYCIN, AMOXICILLIN) [Suspect]
     Indication: HELICOBACTER INFECTION
     Dosage: PER ORAL
     Route: 048
     Dates: start: 20040405, end: 20040408
  2. LUMIGAN [Concomitant]
  3. ALDACTAZIDE [Concomitant]
  4. AVANDIA [Concomitant]
  5. GLUCOPHAGE [Concomitant]
  6. IRON [Concomitant]
  7. LOPRESSOR [Concomitant]
  8. TYLENOL [Concomitant]

REACTIONS (1)
  - ECCHYMOSIS [None]
